FAERS Safety Report 4900778-4 (Version None)
Quarter: 2006Q1

REPORT INFORMATION
  Report Type: 
  Country: None (occurrence: None)
  Receive Date: 20060201
  Receipt Date: 20060120
  Transmission Date: 20060701
  Serious: Yes (Other)
  Sender: FDA-Public Use
  Company Number: 2006EU000197

PATIENT
  Sex: Female

DRUGS (1)
  1. PROGRAF [Suspect]

REACTIONS (1)
  - PULMONARY FIBROSIS [None]
